FAERS Safety Report 5165432-5 (Version None)
Quarter: 2006Q4

REPORT INFORMATION
  Report Type: 
  Country: None (occurrence: None)
  Receive Date: 20061206
  Receipt Date: 20060907
  Transmission Date: 20070319
  Serious: Yes (Other)
  Sender: FDA-Public Use
  Company Number: PHBS2006BE13631

PATIENT
  Sex: Female

DRUGS (2)
  1. ATENOLOL [Concomitant]
  2. VISKEN [Suspect]
     Indication: ARRHYTHMIA SUPRAVENTRICULAR
     Dosage: 5 MG, TID
     Route: 048
     Dates: start: 20060901

REACTIONS (7)
  - ABORTION SPONTANEOUS [None]
  - BENIGN HYDATIDIFORM MOLE [None]
  - DRUG EXPOSURE DURING PREGNANCY [None]
  - INSOMNIA [None]
  - MASS [None]
  - PALPITATIONS [None]
  - SYSTEMIC LUPUS ERYTHEMATOSUS [None]
